FAERS Safety Report 6628323-6 (Version None)
Quarter: 2010Q1

REPORT INFORMATION
  Report Type: 
  Country: None (occurrence: None)
  Receive Date: 20100311
  Receipt Date: 20100226
  Transmission Date: 20100710
  Serious: Yes (Hospitalization)
  Sender: FDA-Public Use
  Company Number: AT-PFIZER INC-2010029318

PATIENT
  Age: 14 Year
  Sex: Female

DRUGS (1)
  1. SERTRALINE HCL [Suspect]
     Dosage: 14 UNIT OF 50MG
     Route: 048

REACTIONS (2)
  - MUSCLE CONTRACTIONS INVOLUNTARY [None]
  - POISONING [None]
